FAERS Safety Report 4844932-9 (Version None)
Quarter: 2005Q4

REPORT INFORMATION
  Report Type: 
  Country: None (occurrence: None)
  Receive Date: 20051201
  Receipt Date: 20051201
  Transmission Date: 20060501
  Serious: Yes (Life-Threatening, Hospitalization)
  Sender: FDA-Public Use
  Company Number: None

PATIENT
  Age: 23 Year
  Sex: Female
  Weight: 81.6475 kg

DRUGS (2)
  1. PAXIL [Suspect]
     Indication: DEPRESSION
     Dosage: 1 PILL 1X DAILY PO
     Route: 048
     Dates: start: 20010601, end: 20050110
  2. PAXIL [Suspect]
     Indication: SYNCOPE VASOVAGAL
     Dosage: 1 PILL 1X DAILY PO
     Route: 048
     Dates: start: 20010601, end: 20050110

REACTIONS (2)
  - SUICIDAL IDEATION [None]
  - SUICIDE ATTEMPT [None]
